FAERS Safety Report 18307541 (Version 1)
Quarter: 2020Q3

REPORT INFORMATION
  Report Type: Spontaneous
  Country: GB (occurrence: GB)
  Receive Date: 20200924
  Receipt Date: 20200924
  Transmission Date: 20201103
  Serious: Yes (Disabling, Other)
  Sender: FDA-Public Use
  Company Number: GB-BAYER-2020-196848

PATIENT
  Age: 69 Year
  Sex: Female
  Weight: 50.74 kg

DRUGS (1)
  1. CIPROXIN [Suspect]
     Active Substance: CIPROFLOXACIN
     Indication: URINARY TRACT INFECTION
     Dosage: UNK
     Route: 048
     Dates: start: 20151224, end: 20200211

REACTIONS (5)
  - Paraesthesia [Unknown]
  - Insomnia [Unknown]
  - Allodynia [Unknown]
  - Rotator cuff syndrome [Unknown]
  - Neuropathy peripheral [Not Recovered/Not Resolved]

NARRATIVE: CASE EVENT DATE: 20151224
